FAERS Safety Report 5808821-5 (Version None)
Quarter: 2008Q3

REPORT INFORMATION
  Report Type: 
  Country: None (occurrence: None)
  Receive Date: 20080714
  Receipt Date: 20080704
  Transmission Date: 20090109
  Serious: Yes (Hospitalization)
  Sender: FDA-Public Use
  Company Number: B0528083A

PATIENT
  Age: 53 Year
  Sex: Female
  Weight: 97 kg

DRUGS (7)
  1. TYVERB [Suspect]
     Dosage: 1250MG PER DAY
     Route: 048
     Dates: start: 20071120, end: 20071126
  2. XELODA [Suspect]
     Dosage: 3000MG PER DAY
     Route: 048
     Dates: start: 20071120, end: 20071126
  3. AMARYL [Concomitant]
     Dosage: 6MG PER DAY
     Route: 048
  4. AVLOCARDYL [Concomitant]
     Dosage: 40MG PER DAY
     Route: 048
  5. LEVOTHYROX [Concomitant]
     Dosage: 175MG PER DAY
     Route: 048
  6. OXYCONTIN [Concomitant]
     Dosage: 120MG PER DAY
     Route: 048
  7. SOLUPRED [Concomitant]
     Indication: HEADACHE
     Dosage: 100MG PER DAY
     Route: 048
     Dates: start: 20071026

REACTIONS (3)
  - HEADACHE [None]
  - MENTAL DISORDER [None]
  - VOMITING [None]
